FAERS Safety Report 19489244 (Version 1)
Quarter: 2021Q3

REPORT INFORMATION
  Report Type: Report from Study
  Country: ID (occurrence: ID)
  Receive Date: 20210703
  Receipt Date: 20210703
  Transmission Date: 20211014
  Serious: Yes (Other)
  Sender: FDA-Public Use
  Company Number: NVSC2021ID144583

PATIENT
  Sex: Female

DRUGS (1)
  1. GLIVEC [Suspect]
     Active Substance: IMATINIB MESYLATE
     Indication: CHRONIC MYELOID LEUKAEMIA
     Dosage: 600 MG ((1 X 6)
     Route: 065

REACTIONS (3)
  - Second primary malignancy [Unknown]
  - Biopsy thyroid gland abnormal [Unknown]
  - Papillary thyroid cancer [Unknown]
